FAERS Safety Report 10617353 (Version 2)
Quarter: 2014Q4

REPORT INFORMATION
  Report Type: Spontaneous
  Country: FR (occurrence: FR)
  Receive Date: 20141201
  Receipt Date: 20141208
  Transmission Date: 20150529
  Serious: Yes (Hospitalization, Other)
  Sender: FDA-Public Use
  Company Number: FR-GLAXOSMITHKLINE-FR2014GSK027223

PATIENT
  Age: 66 Year
  Sex: Male

DRUGS (7)
  1. NAPROSYN [Concomitant]
     Active Substance: NAPROXEN
  2. IXPRIM [Concomitant]
     Active Substance: ACETAMINOPHEN\TRAMADOL HYDROCHLORIDE
  3. SERETIDE [Suspect]
     Active Substance: FLUTICASONE FUROATE\SALMETEROL XINAFOATE
     Indication: ASTHMA
     Route: 055
  4. MOPRAL [Concomitant]
     Active Substance: OMEPRAZOLE SODIUM
  5. VENTOLINE [Suspect]
     Active Substance: ALBUTEROL
     Indication: ASTHMA
     Route: 055
  6. MABTHERA [Suspect]
     Active Substance: RITUXIMAB
     Indication: RHEUMATOID ARTHRITIS
     Dosage: UNK
     Route: 042
     Dates: start: 20130310, end: 20141022
  7. SPECIAFOLDINE [Concomitant]
     Active Substance: FOLIC ACID

REACTIONS (4)
  - Dyspnoea [Unknown]
  - Arrhythmia [Recovered/Resolved]
  - Asthenia [Unknown]
  - Atrial fibrillation [Not Recovered/Not Resolved]

NARRATIVE: CASE EVENT DATE: 201409
